FAERS Safety Report 23938869 (Version 2)
Quarter: 2024Q2

REPORT INFORMATION
  Report Type: Spontaneous
  Country: US (occurrence: US)
  Receive Date: 20240604
  Receipt Date: 20240624
  Transmission Date: 20240716
  Serious: No
  Sender: FDA-Public Use
  Company Number: US-MYLANLABS-2024M1043765

PATIENT
  Sex: Female
  Weight: 83.91 kg

DRUGS (8)
  1. ESTRADIOL TRANSDERMAL SYSTEM [Suspect]
     Active Substance: ESTRADIOL
     Indication: Vulvovaginal dryness
     Dosage: 0.05 MILLIGRAM, QD (ONCE A WEEK)
     Route: 062
     Dates: start: 20240214
  2. ESTRADIOL TRANSDERMAL SYSTEM [Suspect]
     Active Substance: ESTRADIOL
     Indication: Hormone therapy
  3. ESTRADIOL TRANSDERMAL SYSTEM [Suspect]
     Active Substance: ESTRADIOL
     Indication: Atrophic vulvovaginitis
  4. ESTRADIOL [Concomitant]
     Active Substance: ESTRADIOL
     Indication: Vaginal disorder
     Dosage: UNK
     Route: 065
  5. PAXIL [Concomitant]
     Active Substance: PAROXETINE HYDROCHLORIDE
     Dosage: UNK
     Route: 065
  6. VITAMIN D3 [Concomitant]
     Active Substance: CHOLECALCIFEROL
     Dosage: UNK
     Route: 065
  7. OMEGA-3 ACIDS [Concomitant]
     Active Substance: OMEGA-3 FATTY ACIDS
     Dosage: UNK
     Route: 065
  8. WELLBUTRIN [Concomitant]
     Active Substance: BUPROPION HYDROCHLORIDE
     Dosage: UNK
     Route: 065

REACTIONS (5)
  - Rash pruritic [Unknown]
  - Application site erythema [Unknown]
  - Application site pruritus [Unknown]
  - Application site urticaria [Unknown]
  - Application site scar [Unknown]

NARRATIVE: CASE EVENT DATE: 20240101
